FAERS Safety Report 17168584 (Version 2)
Quarter: 2019Q4

REPORT INFORMATION
  Report Type: Report from Study
  Country: DE (occurrence: DE)
  Receive Date: 20191218
  Receipt Date: 20191218
  Transmission Date: 20200122
  Serious: Yes (Death, Other)
  Sender: FDA-Public Use
  Company Number: DE-ACCORD-165826

PATIENT
  Age: 58 Year
  Sex: Male

DRUGS (8)
  1. PLERIXAFOR [Suspect]
     Active Substance: PLERIXAFOR
     Indication: NON-HODGKIN^S LYMPHOMA
     Route: 058
     Dates: start: 20190720, end: 20190723
  2. ATORVASTATIN CALCIUM. [Concomitant]
     Active Substance: ATORVASTATIN CALCIUM
     Indication: PREMEDICATION
     Dosage: 21.65 MG, QD
     Route: 048
  3. CYTARABINE/CYTARABINE HYDROCHLORIDE/CYTARABINE OCFOSFATE [Suspect]
     Active Substance: CYTARABINE
     Dosage: 760 MG, QD
     Route: 042
     Dates: start: 20190914, end: 20190917
  4. BISOPROLOL [Concomitant]
     Active Substance: BISOPROLOL
     Indication: PREMEDICATION
     Dosage: 2.5 MG, BID
     Route: 048
  5. VALSARTAN. [Concomitant]
     Active Substance: VALSARTAN
     Indication: PREMEDICATION
     Dosage: 160 MG, BID
     Route: 048
  6. MELPHALAN. [Suspect]
     Active Substance: MELPHALAN
     Dosage: 260 MG, QD
     Route: 042
     Dates: start: 20190918, end: 20190918
  7. ETOPOSIDE. [Suspect]
     Active Substance: ETOPOSIDE
     Dosage: 280 MG, QD
     Route: 042
     Dates: start: 20190914, end: 20190917
  8. THIOTEPA. [Suspect]
     Active Substance: THIOTEPA
     Dosage: 560 MG, QD
     Route: 042
     Dates: start: 20190913, end: 20190913

REACTIONS (2)
  - Multiple organ dysfunction syndrome [Fatal]
  - Neutropenic sepsis [Fatal]

NARRATIVE: CASE EVENT DATE: 20190920
